FAERS Safety Report 7162769-5 (Version None)
Quarter: 2010Q4

REPORT INFORMATION
  Report Type: 
  Country: None (occurrence: None)
  Receive Date: 20101215
  Receipt Date: 20091215
  Transmission Date: 20110411
  Serious: Yes (Death, Life-Threatening, Hospitalization)
  Sender: FDA-Public Use
  Company Number: CA-PFIZER INC-2007098020

PATIENT
  Age: 66 Year
  Sex: Female
  Weight: 83 kg

DRUGS (18)
  1. SUNITINIB MALATE [Suspect]
     Indication: BREAST CANCER
     Dosage: 37.5 MG, 1X/DAY
     Route: 048
     Dates: start: 20070829, end: 20071119
  2. TRASTUZUMAB [Suspect]
     Indication: BREAST CANCER
     Dosage: 512.4 MG, EVERY 3 WEEKS
     Route: 042
     Dates: start: 20070924, end: 20071105
  3. SYNTHROID [Concomitant]
     Dosage: 0.125 MG, 1X/DAY
     Route: 048
     Dates: start: 19890101, end: 20071101
  4. MULTI-VITAMINS [Concomitant]
     Dosage: 1 DF, 1X/DAY
     Route: 048
     Dates: start: 20000101, end: 20071101
  5. ASCORBIC ACID [Concomitant]
     Dosage: 1000 MG, 1X/DAY
     Route: 048
     Dates: start: 19850101, end: 20071101
  6. VITAMIN E [Concomitant]
     Dosage: 400 IU, 1X/DAY
     Route: 048
     Dates: start: 20000101, end: 20071101
  7. LINSEED [Concomitant]
     Route: 048
     Dates: start: 20000101, end: 20071101
  8. ASPIRIN [Concomitant]
     Dosage: 81 MG, 1X/DAY
     Route: 048
     Dates: start: 20060501, end: 20071101
  9. LIPITOR [Concomitant]
     Dosage: 10 MG, 1X/DAY
     Route: 048
     Dates: start: 20070701, end: 20071101
  10. TYLENOL (CAPLET) [Concomitant]
     Dosage: 1-2 TABLETS AS NECESSARY
     Route: 048
     Dates: start: 20070901, end: 20071101
  11. PARIET [Concomitant]
     Dosage: 10 MG, 1X/DAY
     Route: 048
     Dates: start: 20070921, end: 20071101
  12. BAKING SODA [Concomitant]
     Dosage: UNK
     Route: 048
     Dates: start: 20070926, end: 20071101
  13. ATIVAN [Concomitant]
     Dosage: UNK
     Route: 048
     Dates: start: 20061101, end: 20071101
  14. AMOXICILLIN [Concomitant]
     Dosage: 250 MG, 2X/DAY
     Route: 048
     Dates: start: 20071022, end: 20071029
  15. FUCIDINE CAP [Concomitant]
     Route: 061
     Dates: start: 20071114, end: 20071101
  16. TOBRADEX [Concomitant]
     Route: 047
     Dates: start: 20071114, end: 20071101
  17. NORMAL SALINE [Concomitant]
     Route: 042
     Dates: start: 20071121, end: 20071121
  18. CALCIUM W/MAGNESIUM [Concomitant]
     Route: 048
     Dates: start: 20000101, end: 20071101

REACTIONS (2)
  - CARDIOGENIC SHOCK [None]
  - MULTI-ORGAN FAILURE [None]
